FAERS Safety Report 18311597 (Version 1)
Quarter: 2020Q3

REPORT INFORMATION
  Report Type: Spontaneous
  Country: US (occurrence: US)
  Receive Date: 20200924
  Receipt Date: 20200924
  Transmission Date: 20201103
  Serious: Yes (Other)
  Sender: FDA-Public Use
  Company Number: None

PATIENT

DRUGS (1)
  1. ARMOUR THYROID [Suspect]
     Active Substance: THYROID, PORCINE
     Dates: start: 20200608, end: 20200617

REACTIONS (6)
  - Drug ineffective [None]
  - Syncope [None]
  - Constipation [None]
  - Lethargy [None]
  - Pain [None]
  - Product supply issue [None]

NARRATIVE: CASE EVENT DATE: 20200608
